FAERS Safety Report 4450411-3 (Version None)
Quarter: 2004Q3

REPORT INFORMATION
  Report Type: 
  Country: None (occurrence: None)
  Receive Date: 20040914
  Receipt Date: 20040831
  Transmission Date: 20050211
  Serious: Yes (Hospitalization)
  Sender: FDA-Public Use
  Company Number: 02100-JPN-04-0198

PATIENT
  Age: 55 Year
  Sex: Female

DRUGS (3)
  1. CILOSTAZOL [Suspect]
     Indication: VENTRICULAR FIBRILLATION
     Dosage: 200 MG
     Route: 048
     Dates: start: 20030123, end: 20030209
  2. CLOTIAZEPAM [Concomitant]
  3. MAGNESIUM OXIDE [Concomitant]

REACTIONS (7)
  - ELECTROCARDIOGRAM QT CORRECTED INTERVAL PROLONGED [None]
  - ELECTROCARDIOGRAM QT PROLONGED [None]
  - ELECTROCARDIOGRAM ST SEGMENT ELEVATION [None]
  - ELECTROCARDIOGRAM ST-T CHANGE [None]
  - ELECTROCARDIOGRAM T WAVE INVERSION [None]
  - SYNCOPE [None]
  - VENTRICULAR FIBRILLATION [None]
